FAERS Safety Report 8746934 (Version 2)
Quarter: 2012Q4

REPORT INFORMATION
  Report Type: 
  Country: GB (occurrence: GB)
  Receive Date: 20120827
  Receipt Date: 20121004
  Transmission Date: 20130627
  Serious: Yes (Other)
  Sender: FDA-Public Use
  Company Number: PHFR2012GB004634

PATIENT
  Sex: Male

DRUGS (1)
  1. EXELON [Suspect]

REACTIONS (2)
  - Cerebrovascular accident [Recovered/Resolved]
  - Dysphagia [Recovered/Resolved]
